FAERS Safety Report 7199638-0 (Version None)
Quarter: 2010Q4

REPORT INFORMATION
  Report Type: 
  Country: None (occurrence: None)
  Receive Date: 20101228
  Receipt Date: 20101215
  Transmission Date: 20110411
  Serious: Yes (Other)
  Sender: FDA-Public Use
  Company Number: PHHY2010US38978

PATIENT
  Age: 56 Year
  Sex: Female
  Weight: 66.667 kg

DRUGS (4)
  1. FEMARA [Suspect]
     Indication: BREAST CANCER
     Dosage: 2.5 MG,DAILY
     Route: 048
     Dates: start: 20090801, end: 20100601
  2. SYNTHROID [Concomitant]
  3. TYLENOL W/ CODEINE NO. 3 [Concomitant]
  4. MULTIVITAMIN [Concomitant]

REACTIONS (2)
  - EYE LASER SURGERY [None]
  - RETINAL TEAR [None]
